FAERS Safety Report 15536649 (Version 2)
Quarter: 2019Q1

REPORT INFORMATION
  Report Type: Report from Study
  Country: US (occurrence: US)
  Receive Date: 20181022
  Receipt Date: 20190211
  Transmission Date: 20190417
  Serious: Yes (Hospitalization, Other)
  Sender: FDA-Public Use
  Company Number: US-COVIS PHARMA B.V.-2018COV03808

PATIENT
  Age: 54 Year
  Sex: Female

DRUGS (2)
  1. ZANAFLEX [Suspect]
     Active Substance: TIZANIDINE HYDROCHLORIDE
  2. HUMIRA [Suspect]
     Active Substance: ADALIMUMAB
     Indication: PSORIASIS
     Dosage: UNK
     Route: 058

REACTIONS (18)
  - Memory impairment [Unknown]
  - Gastroenteritis viral [Unknown]
  - Neuropathy peripheral [Unknown]
  - Fall [Unknown]
  - Constipation [Unknown]
  - Loss of consciousness [Recovering/Resolving]
  - Peripheral swelling [Unknown]
  - Pain [Unknown]
  - Inner ear disorder [Unknown]
  - Crying [Unknown]
  - Depression [Unknown]
  - Diabetes mellitus [Unknown]
  - Drug hypersensitivity [Unknown]
  - Psoriasis [Recovering/Resolving]
  - Lower limb fracture [Unknown]
  - Stress [Unknown]
  - Dizziness [Unknown]
  - Ankle fracture [Unknown]

NARRATIVE: CASE EVENT DATE: 201802
